FAERS Safety Report 20106600 (Version 3)
Quarter: 2021Q4

REPORT INFORMATION
  Report Type: Spontaneous
  Country: US (occurrence: US)
  Receive Date: 20211124
  Receipt Date: 20211213
  Transmission Date: 20220303
  Serious: No
  Sender: FDA-Public Use
  Company Number: US-GSKCCFUS-Case-01222103_AE-71608

PATIENT
  Sex: Male

DRUGS (3)
  1. FLOVENT HFA [Suspect]
     Active Substance: FLUTICASONE PROPIONATE
     Indication: Asthma
     Dosage: 1 PUFF(S), BID
     Route: 055
  2. FLOVENT HFA [Suspect]
     Active Substance: FLUTICASONE PROPIONATE
     Indication: Asthma
     Dosage: 1 PUFF(S), BID
     Route: 055
  3. FLOVENT HFA [Suspect]
     Active Substance: FLUTICASONE PROPIONATE

REACTIONS (4)
  - Asymptomatic COVID-19 [Recovered/Resolved]
  - Off label use [Unknown]
  - Product dose omission issue [Unknown]
  - Product complaint [Unknown]

NARRATIVE: CASE EVENT DATE: 20210101
